FAERS Safety Report 9707807 (Version 1)
Quarter: 2013Q4

REPORT INFORMATION
  Report Type: Spontaneous
  Country: FR (occurrence: FR)
  Receive Date: 20131125
  Receipt Date: 20131125
  Transmission Date: 20140711
  Serious: Yes (Hospitalization)
  Sender: FDA-Public Use
  Company Number: FR-NOVOPROD-392769

PATIENT
  Age: 32 Year
  Sex: Female
  Weight: 47 kg

DRUGS (6)
  1. NOVORAPID [Suspect]
     Indication: DIABETIC KETOACIDOSIS
     Dosage: 8 IU/HR IV  BY AN ELECTRIC SYRINGE
  2. NOVORAPID [Suspect]
     Dosage: 10 IU/HR DIRECT INTRAVENOUS INJECTION
     Route: 042
  3. NOVORAPID [Suspect]
     Dosage: 36 IU, QD (10+14+12 AFTER EACH MEAL)
     Route: 065
  4. LANTUS [Concomitant]
     Indication: TYPE 1 DIABETES MELLITUS
     Dosage: 8 IU, QD (IN THE EVENING)
  5. AUGMENTIN                          /00756801/ [Concomitant]
     Indication: LUNG DISORDER
  6. TARDYFERON [Concomitant]
     Indication: MINERAL SUPPLEMENTATION

REACTIONS (1)
  - Generalised oedema [Recovered/Resolved]
